FAERS Safety Report 13977534 (Version 2)
Quarter: 2017Q4

REPORT INFORMATION
  Report Type: Spontaneous
  Country: US (occurrence: US)
  Receive Date: 20170915
  Receipt Date: 20171127
  Transmission Date: 20180321
  Serious: No
  Sender: FDA-Public Use
  Company Number: US-TEVA-781524USA

PATIENT
  Sex: Female

DRUGS (1)
  1. DIAZEPAM. [Suspect]
     Active Substance: DIAZEPAM
     Indication: INSOMNIA
     Dates: start: 20170414

REACTIONS (5)
  - Memory impairment [Unknown]
  - Insomnia [Unknown]
  - Product use in unapproved indication [Unknown]
  - Anxiety [Unknown]
  - Wrong technique in product usage process [Unknown]
